FAERS Safety Report 9857399 (Version 3)
Quarter: 2014Q1

REPORT INFORMATION
  Report Type: Spontaneous
  Country: JP (occurrence: JP)
  Receive Date: 20140131
  Receipt Date: 20140227
  Transmission Date: 20141002
  Serious: Yes (Hospitalization, Other)
  Sender: FDA-Public Use
  Company Number: JP-PFIZER INC-2013358511

PATIENT
  Age: 76 Year
  Sex: Female
  Weight: 70 kg

DRUGS (6)
  1. FOSPHENYTOIN SODIUM [Suspect]
     Dosage: 750 MG, UNK
  2. FOSPHENYTOIN SODIUM [Suspect]
     Dosage: 1125 MG, UNK
     Dates: start: 20131123, end: 20131202
  3. CEFAMEZIN [Suspect]
     Dosage: 2 G, UNK
     Dates: start: 20131123, end: 20131125
  4. ALABEL [Suspect]
     Indication: PHOTODYNAMIC DIAGNOSTIC PROCEDURE
     Dosage: 20 MG/KG, UNK
     Route: 048
     Dates: start: 20131122
  5. NICARDIPINE [Suspect]
     Dosage: 144, UNK
     Dates: start: 20131123, end: 20131203
  6. MIDAZOLAM [Suspect]
     Dosage: 100 MG, UNK
     Dates: start: 20131123, end: 20131124

REACTIONS (3)
  - Haematoma [Recovering/Resolving]
  - Hypertension [Recovered/Resolved]
  - Hepatic function abnormal [Recovered/Resolved]
